FAERS Safety Report 24672665 (Version 1)
Quarter: 2024Q4

REPORT INFORMATION
  Report Type: Spontaneous
  Country: CN (occurrence: CN)
  Receive Date: 20241127
  Receipt Date: 20241127
  Transmission Date: 20250115
  Serious: Yes (Hospitalization, Other)
  Sender: ORGANON
  Company Number: CN-ORGANON-O2411CHN002234

PATIENT
  Age: 24 Year
  Sex: Male
  Weight: 60 kg

DRUGS (4)
  1. SINGULAIR [Suspect]
     Active Substance: MONTELUKAST SODIUM
     Indication: Pneumonia
     Dosage: 10 MG, PO, QD
     Route: 048
     Dates: start: 20240828, end: 20240903
  2. CEFOPERAZONE SODIUM\SULBACTAM SODIUM [Suspect]
     Active Substance: CEFOPERAZONE SODIUM\SULBACTAM SODIUM
     Indication: Pneumonia
     Dosage: 2 G, TID, INTRAVENOUS DRIP
     Route: 042
     Dates: start: 20240822, end: 20240903
  3. CEFOPERAZONE SODIUM\SULBACTAM SODIUM [Suspect]
     Active Substance: CEFOPERAZONE SODIUM\SULBACTAM SODIUM
     Indication: Skin infection
  4. SODIUM CHLORIDE [Concomitant]
     Active Substance: SODIUM CHLORIDE
     Dosage: 50 ML, TID, INTRAVENOUS DRIP
     Route: 042
     Dates: start: 20240822, end: 20240903

REACTIONS (3)
  - Epilepsy [Recovered/Resolved]
  - Photopsia [Unknown]
  - Off label use [Unknown]

NARRATIVE: CASE EVENT DATE: 20240903
